FAERS Safety Report 5472989-3 (Version None)
Quarter: 2007Q4

REPORT INFORMATION
  Report Type: 
  Country: None (occurrence: None)
  Receive Date: 20071001
  Receipt Date: 20070108
  Transmission Date: 20080405
  Serious: No
  Sender: FDA-Public Use
  Company Number: US-ASTRAZENECA-2007UW00359

PATIENT
  Age: 67 Year
  Sex: Female
  Weight: 77.1 kg

DRUGS (4)
  1. ARIMIDEX [Suspect]
     Indication: BREAST CANCER
     Route: 048
     Dates: start: 20050101, end: 20061201
  2. DILANTIN [Concomitant]
  3. ASPIRIN [Concomitant]
  4. AROMASIN [Concomitant]
     Dates: end: 20070101

REACTIONS (4)
  - ARTHRALGIA [None]
  - HAND DEFORMITY [None]
  - MUSCLE SPASMS [None]
  - PAIN IN EXTREMITY [None]
